FAERS Safety Report 6813469-X (Version None)
Quarter: 2010Q3

REPORT INFORMATION
  Report Type: 
  Country: None (occurrence: None)
  Receive Date: 20100701
  Receipt Date: 20100624
  Transmission Date: 20110219
  Serious: Yes (Hospitalization, Other)
  Sender: FDA-Public Use
  Company Number: JP-PFIZER INC-2010076637

PATIENT
  Age: 57 Year
  Sex: Male

DRUGS (9)
  1. CHAMPIX [Suspect]
     Dosage: UNK
  2. RISPERDAL [Concomitant]
     Route: 030
  3. ROHYPNOL [Concomitant]
     Dosage: 2 MG, 1X/DAY
     Route: 048
  4. AMARYL [Concomitant]
  5. METFORMIN HCL [Concomitant]
     Route: 048
  6. LASIX [Concomitant]
     Route: 048
  7. RENIVACE [Concomitant]
     Route: 048
  8. DIGOXIN [Concomitant]
     Route: 048
  9. ARTIST [Concomitant]

REACTIONS (2)
  - INSOMNIA [None]
  - SCHIZOPHRENIA [None]
